FAERS Safety Report 17982427 (Version 1)
Quarter: 2020Q3

REPORT INFORMATION
  Report Type: Other
  Country: NL (occurrence: FR)
  Receive Date: 20200706
  Receipt Date: 20200706
  Transmission Date: 20201103
  Serious: Yes (Hospitalization, Other)
  Sender: FDA-Public Use
  Company Number: FR-ASTELLAS-2020US021846

PATIENT
  Age: 49 Year
  Sex: Male

DRUGS (16)
  1. AMBISOME [Suspect]
     Active Substance: AMPHOTERICIN B
     Indication: INFECTION
     Route: 041
     Dates: start: 20190429, end: 20190520
  2. CYTARABINE. [Suspect]
     Active Substance: CYTARABINE
     Indication: ACUTE MYELOID LEUKAEMIA
     Route: 037
     Dates: start: 20190425, end: 20190503
  3. ROVAMYCINE [SPIRAMYCIN ADEPATE] [Suspect]
     Active Substance: SPIRAMYCIN ADIPATE
     Indication: INFECTION
     Route: 041
     Dates: start: 20190430, end: 20190506
  4. AMIKACINE [AMIKACIN] [Suspect]
     Active Substance: AMIKACIN
     Indication: INFECTION
     Route: 041
     Dates: start: 20190425, end: 20190427
  5. VANCOMYCINE [VANCOMYCIN] [Suspect]
     Active Substance: VANCOMYCIN
     Indication: INFECTION
     Route: 041
     Dates: start: 20190425, end: 20190510
  6. CEFOTAXIME [Suspect]
     Active Substance: CEFOTAXIME SODIUM
     Indication: INFECTION
     Route: 041
     Dates: start: 20190422, end: 20190425
  7. METHYLPREDNISOLONE. [Suspect]
     Active Substance: METHYLPREDNISOLONE
     Indication: ACUTE MYELOID LEUKAEMIA
     Route: 037
     Dates: start: 20190425, end: 20190503
  8. DAUNORUBICIN [Suspect]
     Active Substance: DAUNORUBICIN
     Indication: ACUTE MYELOID LEUKAEMIA
     Route: 041
     Dates: start: 20190425, end: 20190427
  9. ACICLOVIR [Suspect]
     Active Substance: ACYCLOVIR
     Indication: INFECTION
     Route: 041
     Dates: start: 20190429, end: 20190519
  10. RYDAPT [Suspect]
     Active Substance: MIDOSTAURIN
     Indication: ACUTE MYELOID LEUKAEMIA
     Route: 048
     Dates: start: 20190502, end: 20190505
  11. HYDREA [Suspect]
     Active Substance: HYDROXYUREA
     Indication: ACUTE MYELOID LEUKAEMIA
     Route: 048
     Dates: start: 20190419, end: 20190425
  12. ALPRAZOLAM. [Suspect]
     Active Substance: ALPRAZOLAM
     Indication: ANXIETY
     Dosage: 0.25 MG, ONCE DAILY
     Route: 048
     Dates: start: 20190423, end: 20190510
  13. METHOTREXATE. [Suspect]
     Active Substance: METHOTREXATE
     Indication: ACUTE MYELOID LEUKAEMIA
     Route: 037
     Dates: start: 20190425, end: 20190503
  14. CYTARABINE. [Suspect]
     Active Substance: CYTARABINE
     Route: 041
     Dates: start: 20190425, end: 20190501
  15. CEFTAZIDIME. [Suspect]
     Active Substance: CEFTAZIDIME
     Indication: INFECTION
     Route: 041
     Dates: start: 20190426, end: 20190513
  16. ALLOPURINOL. [Suspect]
     Active Substance: ALLOPURINOL
     Indication: PROPHYLAXIS
     Route: 048
     Dates: start: 20190419, end: 20190502

REACTIONS (1)
  - Posterior reversible encephalopathy syndrome [Recovered/Resolved with Sequelae]

NARRATIVE: CASE EVENT DATE: 20190506
